FAERS Safety Report 6696771-4 (Version None)
Quarter: 2010Q2

REPORT INFORMATION
  Report Type: 
  Country: None (occurrence: None)
  Receive Date: 20100426
  Receipt Date: 20100419
  Transmission Date: 20101027
  Serious: Yes (Hospitalization)
  Sender: FDA-Public Use
  Company Number: US-RB-007382-10

PATIENT
  Age: 47 Year
  Sex: Male

DRUGS (2)
  1. SUBOXONE [Suspect]
     Dosage: DOSE VARIES BETWEEN 8-16 MG DAILY
     Route: 060
     Dates: start: 20090601
  2. SUBOXONE [Suspect]
     Indication: PAIN
     Dosage: DOSE VARIES BETWEEN 8-16 MG DAILY
     Route: 060
     Dates: start: 20090601

REACTIONS (1)
  - CROHN'S DISEASE [None]
